FAERS Safety Report 5362809-X (Version None)
Quarter: 2007Q2

REPORT INFORMATION
  Report Type: 
  Country: None (occurrence: None)
  Receive Date: 20070612
  Receipt Date: 20070611
  Transmission Date: 20071010
  Serious: Yes (Hospitalization)
  Sender: FDA-Public Use
  Company Number: TCI2007A02425

PATIENT
  Age: 66 Year
  Sex: Female

DRUGS (9)
  1. LANSAP (LANSOPRAZOLE, CLARITHROMYCIN, AMOXICILLIN) [Suspect]
     Indication: HELICOBACTER INFECTION
     Dosage: 1 CARD (0.5 CARD, 2 IN 1 D) PER ORAL
     Route: 048
     Dates: start: 20070515, end: 20070516
  2. MICARDIS [Concomitant]
  3. ADALAT [Concomitant]
  4. ACECOL (TEMOCAPRIL HYDROCHLORIDE) [Concomitant]
  5. LOCHOL (FLUVASTATIN SODIUM) [Concomitant]
  6. PROTECADIN (LAFUTIDINE) [Concomitant]
  7. LASIX [Concomitant]
  8. URSO 250 [Concomitant]
  9. COMELIAN (DILAZEP DIHYDROCHLORIDE) [Concomitant]

REACTIONS (2)
  - PRURITUS GENERALISED [None]
  - RENAL FAILURE ACUTE [None]
